FAERS Safety Report 22017522 (Version 1)
Quarter: 2023Q1

REPORT INFORMATION
  Report Type: Spontaneous
  Country: None (occurrence: US)
  Receive Date: 20230221
  Receipt Date: 20230221
  Transmission Date: 20230417
  Serious: Yes (Other)
  Sender: FDA-Public Use
  Company Number: US-Imprimis NJOF, LLC-2138256

PATIENT
  Sex: Female

DRUGS (1)
  1. PREDNISOLONE ACETATE PF [Suspect]
     Active Substance: PREDNISOLONE ACETATE
     Route: 047
     Dates: start: 20230216

REACTIONS (1)
  - Eye pain [Recovering/Resolving]
